FAERS Safety Report 7461359 (Version 3)
Quarter: 2018Q3

REPORT INFORMATION
  Report Type: Spontaneous
  Country: DE (occurrence: DE)
  Receive Date: 20100709
  Receipt Date: 20180830
  Transmission Date: 20181010
  Serious: Yes (Hospitalization)
  Sender: FDA-Public Use
  Company Number: DE-JNJFOC-20100700715

PATIENT
  Age: 21 Year
  Sex: Male
  Weight: 108 kg

DRUGS (2)
  1. TOPIRAMATE. [Suspect]
     Active Substance: TOPIRAMATE
     Indication: IDIOPATHIC GENERALISED EPILEPSY
     Route: 048
     Dates: start: 2004
  2. TOPIRAMATE. [Suspect]
     Active Substance: TOPIRAMATE
     Indication: IDIOPATHIC GENERALISED EPILEPSY
     Route: 048

REACTIONS (6)
  - Suicide attempt [Recovered/Resolved]
  - Status epilepticus [Recovered/Resolved]
  - Nystagmus [Unknown]
  - Overdose [Recovered/Resolved]
  - Treatment noncompliance [Unknown]
  - Cognitive disorder [Unknown]
